FAERS Safety Report 4850651-5 (Version None)
Quarter: 2005Q4

REPORT INFORMATION
  Report Type: 
  Country: None (occurrence: None)
  Receive Date: 20051212
  Receipt Date: 20041206
  Transmission Date: 20060501
  Serious: No
  Sender: FDA-Public Use
  Company Number: US-BRISTOL-MYERS SQUIBB COMPANY-12785846

PATIENT
  Age: 60 Year
  Weight: 88 kg

DRUGS (7)
  1. QUESTRAN [Suspect]
     Indication: DIARRHOEA
     Dosage: DOSAGE FORM = PACKET
     Route: 048
  2. CELEXA [Concomitant]
  3. BEXTRA [Concomitant]
  4. CALCIUM GLUCONATE [Concomitant]
  5. PREMARIN [Concomitant]
  6. FORADIL [Concomitant]
  7. ATROVENT [Concomitant]

REACTIONS (2)
  - COUGH [None]
  - NASOPHARYNGITIS [None]
